FAERS Safety Report 17297605 (Version 2)
Quarter: 2021Q2

REPORT INFORMATION
  Report Type: Spontaneous
  Country: PT (occurrence: PT)
  Receive Date: 20200122
  Receipt Date: 20210527
  Transmission Date: 20210716
  Serious: Yes (Death, Life-Threatening, Hospitalization)
  Sender: FDA-Public Use
  Company Number: PT-ALKEM LABORATORIES LIMITED-PT-ALKEM-2020-00049

PATIENT
  Age: 55 Year
  Sex: Female

DRUGS (3)
  1. PREDNISOLONE. [Concomitant]
     Active Substance: PREDNISOLONE
     Indication: IMMUNOSUPPRESSANT DRUG THERAPY
     Dosage: UNKNOWN
     Route: 065
     Dates: start: 200412
  2. MYCOPHENOLATE MOFETIL. [Suspect]
     Active Substance: MYCOPHENOLATE MOFETIL
     Indication: IMMUNOSUPPRESSANT DRUG THERAPY
     Dosage: UNKNOWN
     Route: 065
     Dates: start: 200412, end: 201902
  3. TACROLIMUS. [Suspect]
     Active Substance: TACROLIMUS
     Indication: IMMUNOSUPPRESSANT DRUG THERAPY
     Dosage: UNKNOWN
     Route: 065
     Dates: start: 200412, end: 201902

REACTIONS (4)
  - Metastases to lymph nodes [Fatal]
  - Metastases to lung [Fatal]
  - Metastases to muscle [Fatal]
  - Angiosarcoma metastatic [Fatal]

NARRATIVE: CASE EVENT DATE: 201812
